FAERS Safety Report 6984093-3 (Version None)
Quarter: 2010Q3

REPORT INFORMATION
  Report Type: 
  Country: None (occurrence: None)
  Receive Date: 20100915
  Receipt Date: 20090519
  Transmission Date: 20110219
  Serious: No
  Sender: FDA-Public Use
  Company Number: US-WYE-H09402609

PATIENT
  Sex: Female

DRUGS (5)
  1. PRISTIQ [Suspect]
     Indication: DEPRESSION
     Route: 048
     Dates: start: 20090421
  2. ZOLOFT [Suspect]
     Dosage: TAPERING OFF
     Dates: end: 20090505
  3. ALPRAZOLAM [Concomitant]
  4. PROTONIX [Concomitant]
  5. TOPROL-XL [Concomitant]

REACTIONS (1)
  - CRYING [None]
